FAERS Safety Report 25378350 (Version 1)
Quarter: 2025Q2

REPORT INFORMATION
  Report Type: Report from Study
  Country: US (occurrence: US)
  Receive Date: 20250530
  Receipt Date: 20250530
  Transmission Date: 20250717
  Serious: Yes (Hospitalization)
  Sender: RECORDATI
  Company Number: US-VA000000605-2025002496

PATIENT
  Sex: Female
  Weight: 77.098 kg

DRUGS (3)
  1. CARBAGLU [Suspect]
     Active Substance: CARGLUMIC ACID
     Indication: Propionic acidaemia
     Dosage: 2000 MILLIGRAM, BID (TEN 200 MG TABLETS IN 2.5 ML WATER/EACH TABLET, BEFORE MEALS OR FEEDINGS)
     Route: 048
     Dates: start: 2025
  2. CARBAGLU [Suspect]
     Active Substance: CARGLUMIC ACID
     Dosage: 2000 MILLIGRAM, BID (TEN 200 MG TABLETS IN 2.5 ML WATER/EACH TABLET, BEFORE MEALS OR FEEDINGS)
     Route: 048
     Dates: start: 2025
  3. CARBAGLU [Suspect]
     Active Substance: CARGLUMIC ACID
     Dosage: 600 MG, BID (3 TABLETS) (DOSE DECREASED)
     Route: 048
     Dates: start: 2025

REACTIONS (3)
  - Renal disorder [Not Recovered/Not Resolved]
  - Hospitalisation [Recovered/Resolved]
  - Product storage error [Recovered/Resolved]

NARRATIVE: CASE EVENT DATE: 20250101
